FAERS Safety Report 11418477 (Version 1)
Quarter: 2015Q3

REPORT INFORMATION
  Report Type: Spontaneous
  Country: US (occurrence: US)
  Receive Date: 20150826
  Receipt Date: 20150826
  Transmission Date: 20151125
  Serious: No
  Sender: FDA-Public Use
  Company Number: US-NOVEN PHARMACEUTICALS, INC.-US2015000586

PATIENT
  Sex: Female

DRUGS (2)
  1. MINIVELLE [Suspect]
     Active Substance: ESTRADIOL
     Indication: HOT FLUSH
     Dosage: 0.05 MG, UNKNOWN
     Route: 062
     Dates: start: 201505, end: 2015
  2. MINIVELLE [Suspect]
     Active Substance: ESTRADIOL
     Indication: NIGHT SWEATS

REACTIONS (3)
  - Drug dose omission [Unknown]
  - Product adhesion issue [Unknown]
  - No adverse event [Unknown]

NARRATIVE: CASE EVENT DATE: 2015
